FAERS Safety Report 4777555-0 (Version None)
Quarter: 2005Q3

REPORT INFORMATION
  Report Type: 
  Country: None (occurrence: None)
  Receive Date: 20050915
  Receipt Date: 20050901
  Transmission Date: 20060218
  Serious: Yes (Hospitalization)
  Sender: FDA-Public Use
  Company Number: 2005BI009751

PATIENT
  Age: 66 Year
  Sex: Female
  Weight: 86.1834 kg

DRUGS (13)
  1. AVONEX [Suspect]
     Indication: MULTIPLE SCLEROSIS
     Dosage: 30 UG QW IM
     Route: 030
     Dates: start: 20050131, end: 20050301
  2. AVONEX [Suspect]
     Indication: MULTIPLE SCLEROSIS
     Dosage: 30 UG QW IM
     Route: 030
     Dates: start: 20050501
  3. DIOVAN HCT [Concomitant]
  4. ACTOS [Concomitant]
  5. EVISTA [Concomitant]
  6. NEURONTIN [Concomitant]
  7. BACLOFEN [Concomitant]
  8. AMANTADINE [Concomitant]
  9. DETROL LA [Concomitant]
  10. BACLOFEN [Concomitant]
  11. VITAMIN B12 INJECTION [Concomitant]
  12. MULTI-VITAMIN [Concomitant]
  13. TYLENOL (CAPLET) [Concomitant]

REACTIONS (4)
  - CARDIAC ENZYMES INCREASED [None]
  - DYSPNOEA [None]
  - HEART RATE INCREASED [None]
  - URINARY TRACT INFECTION [None]
